FAERS Safety Report 6467966-X (Version None)
Quarter: 2009Q4

REPORT INFORMATION
  Report Type: 
  Country: None (occurrence: None)
  Receive Date: 20091127
  Receipt Date: 20091118
  Transmission Date: 20100525
  Serious: Yes (Hospitalization)
  Sender: FDA-Public Use
  Company Number: SPV1-2009-01852

PATIENT
  Age: 65 Year
  Sex: Male

DRUGS (9)
  1. ANAGRELIDE HCL [Suspect]
     Indication: ESSENTIAL THROMBOCYTHAEMIA
     Dosage: 1 MG IN THE MORNING, 0.5 MG AT LUNCH, AND 0.5 MG AT DINNER,; 0.5 MG, 4X/DAY:QID,; 1 MG, 2X/DAY:BID,
     Dates: start: 20040901, end: 20060101
  2. ANAGRELIDE HCL [Suspect]
     Indication: ESSENTIAL THROMBOCYTHAEMIA
     Dosage: 1 MG IN THE MORNING, 0.5 MG AT LUNCH, AND 0.5 MG AT DINNER,; 0.5 MG, 4X/DAY:QID,; 1 MG, 2X/DAY:BID,
     Dates: start: 20060101, end: 20080401
  3. ANAGRELIDE HCL [Suspect]
     Indication: ESSENTIAL THROMBOCYTHAEMIA
     Dosage: 1 MG IN THE MORNING, 0.5 MG AT LUNCH, AND 0.5 MG AT DINNER,; 0.5 MG, 4X/DAY:QID,; 1 MG, 2X/DAY:BID,
     Dates: start: 20080401, end: 20090828
  4. ACETYLSALICYLIC ACID SRT [Concomitant]
  5. KARVEA (IRBESARTAN) UNKNOWN [Concomitant]
  6. ASTUDAL (AMLODIPINE BESILATE) UNKNOWN [Concomitant]
  7. SUTRIL /01036501/ (TORASEMIDE) UNKNOWN [Concomitant]
  8. OMEPRAZOL /00661201/ (OMEPRAZOLE) UNKNOWN [Concomitant]
  9. FRAXIPARIN /01437702/ (NADROPARIN CALCIUM) INJECTION [Concomitant]

REACTIONS (4)
  - BLOOD CALCIUM DECREASED [None]
  - HAEMATOCRIT DECREASED [None]
  - HAEMOGLOBIN DECREASED [None]
  - TUBULOINTERSTITIAL NEPHRITIS [None]
